FAERS Safety Report 8533810-X (Version None)
Quarter: 2012Q3

REPORT INFORMATION
  Report Type: 
  Country: None (occurrence: None)
  Receive Date: 20120724
  Receipt Date: 20120717
  Transmission Date: 20120928
  Serious: Yes (Hospitalization)
  Sender: FDA-Public Use
  Company Number: US-009507513-1207USA005880

PATIENT

DRUGS (4)
  1. PEG-INTRON [Suspect]
     Indication: HEPATITIS C
     Dosage: 150 MICROGRAM, QW
     Route: 058
     Dates: start: 20111201
  2. VICTRELIS [Suspect]
     Dosage: 800 MG, TID
     Dates: start: 20111226
  3. RIBASPHERE [Suspect]
     Indication: HEPATITIS C
     Dosage: 600 MG, QAM
  4. RIBASPHERE [Suspect]
     Dosage: 400 MG, QPM

REACTIONS (1)
  - ADVERSE EVENT [None]
